FAERS Safety Report 10199839 (Version 1)
Quarter: 2014Q2

REPORT INFORMATION
  Report Type: Spontaneous
  Country: US (occurrence: US)
  Receive Date: 20140527
  Receipt Date: 20140527
  Transmission Date: 20141212
  Serious: No
  Sender: FDA-Public Use
  Company Number: US-NOVEN-14US009002

PATIENT
  Age: 5 Year
  Sex: Male

DRUGS (3)
  1. DAYTRANA [Suspect]
     Indication: ATTENTION DEFICIT/HYPERACTIVITY DISORDER
     Dosage: 20 MG, QD, FOR 9 HOURS
     Route: 062
     Dates: start: 2014
  2. DAYTRANA [Suspect]
     Dosage: 20 MG, QD, FOR 9 HOURS
     Route: 062
     Dates: start: 20131220
  3. CONCERTA [Concomitant]
     Indication: ATTENTION DEFICIT/HYPERACTIVITY DISORDER
     Route: 048

REACTIONS (6)
  - Dermatillomania [Not Recovered/Not Resolved]
  - Anger [Not Recovered/Not Resolved]
  - Depressed mood [None]
  - Off label use [Not Recovered/Not Resolved]
  - Drug prescribing error [None]
  - Product quality issue [Not Recovered/Not Resolved]
